FAERS Safety Report 5311045-1 (Version None)
Quarter: 2007Q2

REPORT INFORMATION
  Report Type: 
  Country: None (occurrence: None)
  Receive Date: 20070430
  Receipt Date: 20070424
  Transmission Date: 20071010
  Serious: Yes (Other)
  Sender: FDA-Public Use
  Company Number: US-JNJFOC-20061204607

PATIENT
  Sex: Female
  Weight: 93.9 kg

DRUGS (12)
  1. ORTHO EVRA [Suspect]
     Indication: CONTRACEPTION
     Route: 062
  2. SEROQUEL [Concomitant]
     Indication: DRUG USE FOR UNKNOWN INDICATION
  3. TOPAMAX [Concomitant]
     Indication: DRUG USE FOR UNKNOWN INDICATION
  4. TRILEPTAL [Concomitant]
     Indication: DRUG USE FOR UNKNOWN INDICATION
  5. CLARITIN [Concomitant]
     Indication: MULTIPLE ALLERGIES
  6. ADVAIR DISKUS 100/50 [Concomitant]
     Indication: ASTHMA
     Route: 055
  7. COMBIVENT [Concomitant]
     Indication: ASTHMA
     Route: 055
  8. ZITHROMAX [Concomitant]
     Indication: DRUG USE FOR UNKNOWN INDICATION
  9. BROMFED [Concomitant]
     Indication: COUGH
  10. BROMFED [Concomitant]
     Indication: UNEVALUABLE EVENT
  11. IBUPROFEN [Concomitant]
     Indication: PAIN
  12. IBUPROFEN [Concomitant]
     Indication: PYREXIA

REACTIONS (4)
  - AMENORRHOEA [None]
  - HYPERPHAGIA [None]
  - INJURY [None]
  - POLLAKIURIA [None]
